FAERS Safety Report 18295327 (Version 1)
Quarter: 2020Q3

REPORT INFORMATION
  Report Type: Spontaneous
  Country: PL (occurrence: PL)
  Receive Date: 20200922
  Receipt Date: 20200922
  Transmission Date: 20201103
  Serious: Yes (Death, Other)
  Sender: FDA-Public Use
  Company Number: PL-CORDEN PHARMA LATINA S.P.A.-PL-2020COR000021

PATIENT
  Age: 9 Year
  Sex: Male

DRUGS (13)
  1. ACTINOMYCINES [Suspect]
     Active Substance: UNSPECIFIED INGREDIENT
     Indication: ALVEOLAR RHABDOMYOSARCOMA
     Dosage: CUMULATIVE DOSE: 3 MG/M2
     Route: 065
  2. DOXORUBICIN [Suspect]
     Active Substance: DOXORUBICIN
     Indication: ALVEOLAR RHABDOMYOSARCOMA
     Dosage: CUMULATIVE DOSE: 160 MG/M2
     Route: 065
  3. ETOPOSIDE. [Suspect]
     Active Substance: ETOPOSIDE
     Indication: ALVEOLAR RHABDOMYOSARCOMA
     Dosage: CUMULATIVE DOSE: 3600 MG/M2
     Route: 042
  4. IFOSFAMIDE. [Suspect]
     Active Substance: IFOSFAMIDE
     Indication: ALVEOLAR RHABDOMYOSARCOMA
     Dosage: CUMULATIVE DOSE: 54000 MG/M2
     Route: 065
  5. TROFOSFAMIDE [Suspect]
     Active Substance: TROFOSFAMIDE
     Indication: ALVEOLAR RHABDOMYOSARCOMA
     Dosage: CUMULATIVE DOSE: 2000 MG/M2
     Route: 065
  6. TOPOTECAN [Suspect]
     Active Substance: TOPOTECAN HYDROCHLORIDE
     Indication: ALVEOLAR RHABDOMYOSARCOMA
     Dosage: CUMULATIVE DOSE: 28 MG/M2
     Route: 065
  7. CYCLOPHOSPHAMIDE. [Suspect]
     Active Substance: CYCLOPHOSPHAMIDE
     Indication: ALVEOLAR RHABDOMYOSARCOMA
     Dosage: CUMULATIVE DOSE: 1000 MG/M2
     Route: 065
  8. IRINOTECAN [Suspect]
     Active Substance: IRINOTECAN
     Indication: ALVEOLAR RHABDOMYOSARCOMA
     Dosage: CUMULATIVE DOSE: 65 MG/M2
     Route: 065
  9. CARBOPLATIN. [Suspect]
     Active Substance: CARBOPLATIN
     Indication: ALVEOLAR RHABDOMYOSARCOMA
     Dosage: CUMULATIVE DOSE: 6600 MG/M2
     Route: 065
  10. ETOPOSIDE. [Suspect]
     Active Substance: ETOPOSIDE
     Dosage: CUMULATIVE DOSE: 2000 MG/M2
     Route: 048
  11. IDARUBICIN [Suspect]
     Active Substance: IDARUBICIN
     Indication: ALVEOLAR RHABDOMYOSARCOMA
     Dosage: CUMULATIVE DOSE: 80 MG/M2
     Route: 065
  12. VINCRISTINE [Suspect]
     Active Substance: VINCRISTINE
     Indication: ALVEOLAR RHABDOMYOSARCOMA
     Dosage: CUMULATIVE DOSE: 16.5 MG/M2
     Route: 065
  13. RADIOTHERAPY [Suspect]
     Active Substance: RADIATION THERAPY
     Indication: ALVEOLAR RHABDOMYOSARCOMA
     Dosage: 54 GY
     Route: 065

REACTIONS (5)
  - Refractory cytopenia with unilineage dysplasia [Unknown]
  - Acute myeloid leukaemia [Fatal]
  - Myelodysplastic syndrome transformation [Unknown]
  - Rhabdomyosarcoma recurrent [Unknown]
  - Hyperleukocytosis [Unknown]

NARRATIVE: CASE EVENT DATE: 2009
